FAERS Safety Report 8565184-2 (Version None)
Quarter: 2012Q3

REPORT INFORMATION
  Report Type: 
  Country: None (occurrence: None)
  Receive Date: 20120803
  Receipt Date: 20120725
  Transmission Date: 20120928
  Serious: Yes (Hospitalization)
  Sender: FDA-Public Use
  Company Number: JP-ASTRAZENECA-2012SE53449

PATIENT
  Age: 80 Year
  Sex: Male

DRUGS (5)
  1. MIDAZOLAM [Concomitant]
     Dosage: DOSE UNKNOWN
     Route: 065
  2. DIPRIVAN [Suspect]
     Route: 042
  3. ADSORBED TETANUS TOXOID [Concomitant]
     Dosage: DOSE UNKNOWN
     Route: 065
  4. PENICILLIN G [Concomitant]
     Dosage: 2400 X 104 U/DAY
     Route: 065
  5. PANCURONIUM BROMIDE [Concomitant]
     Dosage: DOSE UNKNOWN
     Route: 065

REACTIONS (4)
  - ATELECTASIS [None]
  - PNEUMONIA [None]
  - PLEURAL EFFUSION [None]
  - INTERSTITIAL LUNG DISEASE [None]
